FAERS Safety Report 4287007-2 (Version None)
Quarter: 2004Q1

REPORT INFORMATION
  Report Type: 
  Country: None (occurrence: None)
  Receive Date: 20040205
  Receipt Date: 20040116
  Transmission Date: 20041129
  Serious: Yes (Hospitalization)
  Sender: FDA-Public Use
  Company Number: USA040156889

PATIENT
  Age: 77 Year
  Sex: Female

DRUGS (3)
  1. FORTEO [Suspect]
     Indication: OSTEOPOROSIS
     Dosage: 20 UG/DAY
     Dates: start: 20031101, end: 20040109
  2. GLIPIZIDE [Concomitant]
  3. LASIX [Concomitant]

REACTIONS (9)
  - BACK PAIN [None]
  - BLOOD GLUCOSE INCREASED [None]
  - BLOOD POTASSIUM INCREASED [None]
  - DYSURIA [None]
  - INJURY [None]
  - LABORATORY TEST ABNORMAL [None]
  - LOCALISED INFECTION [None]
  - SKIN DISCOLOURATION [None]
  - SWELLING [None]
